FAERS Safety Report 11981752 (Version 2)
Quarter: 2016Q3

REPORT INFORMATION
  Report Type: Report from Study
  Country: CA (occurrence: CA)
  Receive Date: 20160131
  Receipt Date: 20160815
  Transmission Date: 20161109
  Serious: Yes (Other)
  Sender: FDA-Public Use
  Company Number: CA-ROCHE-1701546

PATIENT
  Sex: Female
  Weight: 73 kg

DRUGS (9)
  1. PREDNISONE. [Concomitant]
     Active Substance: PREDNISONE
  2. OMEPRAZOLE. [Concomitant]
     Active Substance: OMEPRAZOLE
  3. ACTEMRA [Suspect]
     Active Substance: TOCILIZUMAB
     Indication: RHEUMATOID ARTHRITIS
     Route: 042
     Dates: start: 20110803
  4. VITAMIN B12 [Concomitant]
     Active Substance: CYANOCOBALAMIN
     Route: 065
  5. NAPROXEN. [Concomitant]
     Active Substance: NAPROXEN
  6. LEFLUNOMIDE. [Concomitant]
     Active Substance: LEFLUNOMIDE
  7. NAPRELAN [Concomitant]
     Active Substance: NAPROXEN SODIUM
  8. METHOTREXATE. [Concomitant]
     Active Substance: METHOTREXATE
  9. PROMETRIUM [Concomitant]
     Active Substance: PROGESTERONE

REACTIONS (3)
  - Gastrointestinal anastomotic leak [Unknown]
  - Gastric ulcer [Unknown]
  - Weight decreased [Recovering/Resolving]
